FAERS Safety Report 24620288 (Version 1)
Quarter: 2024Q4

REPORT INFORMATION
  Report Type: Spontaneous
  Country: US (occurrence: US)
  Receive Date: 20241114
  Receipt Date: 20241114
  Transmission Date: 20250115
  Serious: Yes (Other)
  Sender: CURRAX PHARMACEUTICALS
  Company Number: US-NALPROPION PHARMACEUTICALS INC.-US-2023CUR004949

PATIENT
  Age: 26 Year
  Sex: Female

DRUGS (2)
  1. CONTRAVE [Suspect]
     Active Substance: BUPROPION HYDROCHLORIDE\NALTREXONE HYDROCHLORIDE
     Indication: Product used for unknown indication
     Dosage: STRENGTH: 8/90 MG, UNKNOWN DOSE AND FREQUENCY
     Route: 065
     Dates: start: 202311, end: 202311
  2. CONTRAVE [Suspect]
     Active Substance: BUPROPION HYDROCHLORIDE\NALTREXONE HYDROCHLORIDE
     Dosage: STRENGTH: 8/90 MG, UNKNOWN DOSE AND FREQUENCY (WEEK 3)
     Route: 065
     Dates: start: 202311

REACTIONS (7)
  - Angle closure glaucoma [Unknown]
  - Sleep deficit [Unknown]
  - Chromaturia [Unknown]
  - Visual impairment [Unknown]
  - Eye pain [Unknown]
  - Skin reaction [Unknown]
  - Constipation [Unknown]

NARRATIVE: CASE EVENT DATE: 20231101
